FAERS Safety Report 4563018-4 (Version None)
Quarter: 2005Q1

REPORT INFORMATION
  Report Type: 
  Country: None (occurrence: None)
  Receive Date: 20050126
  Receipt Date: 20050121
  Transmission Date: 20050727
  Serious: Yes (Hospitalization)
  Sender: FDA-Public Use
  Company Number: 04-12-1772

PATIENT
  Age: 74 Year
  Sex: Male

DRUGS (2)
  1. CLOZAPINE [Suspect]
     Indication: PSYCHOTIC DISORDER
     Dosage: 50-300MG QD ORAL
     Route: 048
     Dates: start: 20020101
  2. CLOZAPINE [Suspect]
     Indication: SCHIZOAFFECTIVE DISORDER
     Dosage: 50-300MG QD ORAL
     Route: 048
     Dates: start: 20020101

REACTIONS (6)
  - ABASIA [None]
  - AGGRESSION [None]
  - CONFUSIONAL STATE [None]
  - DRUG ABUSER [None]
  - ORAL INTAKE REDUCED [None]
  - PARANOIA [None]
